FAERS Safety Report 8479307-7 (Version None)
Quarter: 2012Q2

REPORT INFORMATION
  Report Type: 
  Country: None (occurrence: None)
  Receive Date: 20120629
  Receipt Date: 20120620
  Transmission Date: 20120825
  Serious: Yes (Other)
  Sender: FDA-Public Use
  Company Number: FR-GLAXOSMITHKLINE-B0809572A

PATIENT
  Age: 40 Year
  Sex: Female
  Weight: 54 kg

DRUGS (2)
  1. TYVERB [Suspect]
     Indication: BREAST CANCER METASTATIC
     Route: 048
     Dates: start: 20110816, end: 20120208
  2. XELODA [Concomitant]
     Indication: BREAST CANCER METASTATIC

REACTIONS (1)
  - TOXICITY TO VARIOUS AGENTS [None]
